FAERS Safety Report 7584015-0 (Version None)
Quarter: 2011Q2

REPORT INFORMATION
  Report Type: 
  Country: None (occurrence: None)
  Receive Date: 20110630
  Receipt Date: 20110620
  Transmission Date: 20111010
  Serious: Yes (Other)
  Sender: FDA-Public Use
  Company Number: JP-JNJFOC-20110203354

PATIENT
  Age: 64 Year
  Sex: Male
  Weight: 68 kg

DRUGS (13)
  1. REMICADE [Suspect]
     Route: 042
     Dates: start: 20101014
  2. REMICADE [Suspect]
     Route: 042
     Dates: start: 20100708
  3. CYCLOSPORINE [Concomitant]
     Indication: PSORIASIS
     Route: 048
  4. GLYCYRON [Concomitant]
     Indication: LIVER FUNCTION TEST ABNORMAL
     Dosage: STARTED BEFORE INFLIXIMAB TREATMENT, 6 TABS
     Route: 048
  5. REMICADE [Suspect]
     Route: 042
     Dates: start: 20100818
  6. REMICADE [Suspect]
     Route: 042
     Dates: start: 20100721
  7. SOLU-MEDROL [Concomitant]
     Indication: PROPHYLAXIS
     Route: 042
     Dates: start: 20101202, end: 20101202
  8. REMICADE [Suspect]
     Indication: PSORIASIS
     Dosage: TOTAL 5 INFUSIONS
     Route: 042
     Dates: start: 20101202
  9. ISONIAZID [Concomitant]
     Indication: ANTIBIOTIC PROPHYLAXIS
     Route: 048
     Dates: start: 20100316, end: 20101202
  10. PYDOXAL [Concomitant]
     Indication: PROPHYLAXIS
     Dosage: STARTED BEFORE INFLIXIMAB THERAPY
     Route: 048
     Dates: end: 20101202
  11. URSO 250 [Concomitant]
     Indication: LIVER FUNCTION TEST ABNORMAL
     Dosage: STARTED BEFORE INFLIXIMAB THERAPY
     Route: 048
  12. CLOBETASOL PROPIONATE [Concomitant]
     Indication: PSORIASIS
     Dosage: STARTED BEFORE INFLIXIMAB THERAPY
     Route: 061
  13. DRENISON [Concomitant]
     Indication: PSORIASIS
     Dosage: STARTED BEFORE INFLIXIMAB THERAPY
     Route: 061

REACTIONS (7)
  - HYPOXIA [None]
  - FEELING ABNORMAL [None]
  - BLOOD PRESSURE DECREASED [None]
  - HEART RATE DECREASED [None]
  - BLOOD PRESSURE SYSTOLIC INCREASED [None]
  - DEPRESSED LEVEL OF CONSCIOUSNESS [None]
  - INFUSION RELATED REACTION [None]
